FAERS Safety Report 22034045 (Version 1)
Quarter: 2023Q1

REPORT INFORMATION
  Report Type: Spontaneous
  Country: US (occurrence: US)
  Receive Date: 20230224
  Receipt Date: 20230224
  Transmission Date: 20230417
  Serious: No
  Sender: FDA-Public Use
  Company Number: US-GALDERMA-US2023001651

PATIENT

DRUGS (5)
  1. PROACTIV MD ADAPALENE ACNE TREATMENT [Suspect]
     Active Substance: ADAPALENE
     Indication: Acne
     Dosage: 1 DOSAGE FORM, BID, APPLIED ON FACE, ENOUGH TO COVER AFFECTED AREAS
     Route: 061
     Dates: start: 202212
  2. Proactiv MD Ultra Gentle Cleanser [Concomitant]
     Indication: Acne
     Dosage: 1 DOSAGE FORM, BID, APPLIED ENOUGH TO MAKE HIS SKIN LOOK GLOSSY
     Route: 061
     Dates: start: 202212
  3. Proactiv MD Ultra Hydrating Moisturizer [Concomitant]
     Indication: Acne
     Dosage: 1 DOSAGE FORM, BID, APPLIED ENOUGH TO MAKE HIS SKIN LOOK GLOSSY
     Route: 061
     Dates: start: 202212
  4. Proactiv Post Acne Dark Mark Relief [Concomitant]
     Indication: Acne
     Dosage: 1 DOSAGE FORM, BID, APPLIED ENOUGH TO MAKE HIS SKIN LOOK GLOSSY
     Route: 061
     Dates: start: 202212
  5. Proactiv Post Acne Scar Gel [Concomitant]
     Indication: Acne
     Dosage: 1 DOSAGE FORM, BID, APPLIED ENOUGH TO MAKE HIS SKIN LOOK GLOSSY
     Route: 061
     Dates: start: 202212

REACTIONS (2)
  - Inappropriate schedule of product administration [Recovered/Resolved]
  - Overdose [Recovered/Resolved]
